FAERS Safety Report 4710395-7 (Version None)
Quarter: 2005Q3

REPORT INFORMATION
  Report Type: 
  Country: None (occurrence: None)
  Receive Date: 20050711
  Receipt Date: 20050701
  Transmission Date: 20060218
  Serious: Yes (Hospitalization)
  Sender: FDA-Public Use
  Company Number: US-BOEHRINGER INGELHEIM PHARMACEUTICALS, INC.-2005-BP-11222BP

PATIENT
  Sex: Male
  Weight: 137.7 kg

DRUGS (5)
  1. TIPRANAVIR / RITONAVIR CAPSULES [Suspect]
     Indication: HIV INFECTION
     Dosage: TPV 1000MG/RTV 400MG
     Route: 048
     Dates: end: 20050628
  2. FLORINEF [Concomitant]
     Route: 048
     Dates: start: 20050622
  3. VIREAD [Concomitant]
     Route: 048
     Dates: start: 20031013, end: 20050628
  4. DELAVRADINE [Concomitant]
     Route: 048
     Dates: start: 20041108, end: 20050628
  5. SEPTRA [Concomitant]
     Route: 048
     Dates: start: 20031031

REACTIONS (1)
  - ORTHOSTATIC HYPOTENSION [None]
